FAERS Safety Report 4741855-0 (Version None)
Quarter: 2005Q3

REPORT INFORMATION
  Report Type: 
  Country: None (occurrence: None)
  Receive Date: 20050810
  Receipt Date: 20050314
  Transmission Date: 20060218
  Serious: Yes (Hospitalization)
  Sender: FDA-Public Use
  Company Number: US-MERCK-0503USA02972

PATIENT
  Age: 56 Year
  Sex: Female
  Weight: 68 kg

DRUGS (8)
  1. VIOXX [Suspect]
     Indication: ARTHRITIS
     Route: 048
     Dates: start: 19990301, end: 20010901
  2. ASPIRIN [Concomitant]
     Route: 065
  3. XANAX [Concomitant]
     Route: 065
  4. PREMPRO [Concomitant]
     Route: 065
  5. NITROGLYCERIN [Concomitant]
     Route: 065
  6. PLAVIX [Concomitant]
     Route: 065
  7. CELEBREX [Concomitant]
     Route: 065
     Dates: start: 20010101, end: 20050101
  8. BEXTRA [Concomitant]
     Route: 065
     Dates: start: 20010101, end: 20050101

REACTIONS (10)
  - ARRHYTHMIA [None]
  - CAROTID ARTERY STENOSIS [None]
  - CHEST PAIN [None]
  - CORONARY ARTERY DISEASE [None]
  - GASTRIC ULCER [None]
  - HYPERTENSION [None]
  - MYOCARDIAL INFARCTION [None]
  - SLEEP APNOEA SYNDROME [None]
  - STRESS [None]
  - SWELLING [None]
